FAERS Safety Report 19733030 (Version 1)
Quarter: 2021Q3

REPORT INFORMATION
  Report Type: Spontaneous
  Country: US (occurrence: US)
  Receive Date: 20210823
  Receipt Date: 20210823
  Transmission Date: 20211014
  Serious: Yes (Other)
  Sender: FDA-Public Use
  Company Number: US-ROCHE-2865069

PATIENT
  Age: 30 Year
  Sex: Male

DRUGS (6)
  1. EVRYSDI [Suspect]
     Active Substance: RISDIPLAM
     Route: 048
     Dates: start: 20210718, end: 20210718
  2. EVRYSDI [Suspect]
     Active Substance: RISDIPLAM
     Route: 048
     Dates: start: 20210708, end: 20210709
  3. EVRYSDI [Suspect]
     Active Substance: RISDIPLAM
     Route: 048
     Dates: start: 20210702, end: 20210718
  4. VITAMIN D3 [Concomitant]
     Active Substance: CHOLECALCIFEROL
     Indication: SPINAL MUSCULAR ATROPHY
     Route: 048
     Dates: start: 20210706
  5. EVRYSDI [Suspect]
     Active Substance: RISDIPLAM
     Indication: SPINAL MUSCULAR ATROPHY
     Route: 048
     Dates: start: 20210703, end: 20210705
  6. SPINRAZA [Concomitant]
     Active Substance: NUSINERSEN

REACTIONS (5)
  - Nausea [Recovered/Resolved]
  - Dysphagia [Unknown]
  - Anxiety [Unknown]
  - Fatigue [Unknown]
  - Tachycardia [Recovered/Resolved]

NARRATIVE: CASE EVENT DATE: 20210703
